FAERS Safety Report 21756891 (Version 2)
Quarter: 2023Q1

REPORT INFORMATION
  Report Type: Spontaneous
  Country: US (occurrence: None)
  Receive Date: 20221220
  Receipt Date: 20230117
  Transmission Date: 20230418
  Serious: No
  Sender: FDA-Public Use
  Company Number: 2022A391624

PATIENT
  Age: 21026 Day
  Sex: Female
  Weight: 62.1 kg

DRUGS (1)
  1. BYDUREON BCISE [Suspect]
     Active Substance: EXENATIDE
     Indication: Type 2 diabetes mellitus
     Route: 058
     Dates: start: 202201

REACTIONS (2)
  - Glycosylated haemoglobin abnormal [Unknown]
  - Needle issue [Unknown]

NARRATIVE: CASE EVENT DATE: 20221111
